FAERS Safety Report 8795754 (Version 1)
Quarter: 2012Q4

REPORT INFORMATION
  Report Type: 
  Country: US (occurrence: US)
  Receive Date: 20120919
  Receipt Date: 20120919
  Transmission Date: 20130627
  Serious: Yes (Other)
  Sender: FDA-Public Use
  Company Number: US-ASTRAZENECA-2012SE70780

PATIENT
  Age: 68 Year
  Sex: Female
  Weight: 59 kg

DRUGS (10)
  1. SYMBICORT PMDI [Suspect]
     Indication: CHRONIC OBSTRUCTIVE PULMONARY DISEASE
     Dosage: 160 MCG, 2 PUFFS, BID
     Route: 055
  2. SYMBICORT PMDI [Suspect]
     Indication: EMPHYSEMA
     Dosage: 160 MCG, 2 PUFFS, BID
     Route: 055
  3. TOPROL XL [Suspect]
     Route: 048
  4. COMBIVENT [Concomitant]
     Indication: EMPHYSEMA
     Dosage: 2 PUFFS
     Route: 055
  5. ALBUTEROL [Concomitant]
  6. ALBUTEROL [Concomitant]
  7. VITAMIN D [Concomitant]
  8. BABY ASPIRIN [Concomitant]
     Route: 048
  9. FISH OIL [Concomitant]
     Indication: BLOOD CHOLESTEROL ABNORMAL
     Route: 048
  10. TOPROL [Concomitant]
     Indication: HEART RATE IRREGULAR
     Route: 048

REACTIONS (10)
  - Cataract [Unknown]
  - Eye disorder [Unknown]
  - White blood cell disorder [Unknown]
  - Oxygen saturation decreased [Unknown]
  - Fatigue [Unknown]
  - Fatigue [Unknown]
  - Visual impairment [Unknown]
  - Dyspnoea [Unknown]
  - Drug dose omission [Unknown]
  - Intentional drug misuse [Unknown]
